FAERS Safety Report 8349042-4 (Version None)
Quarter: 2012Q2

REPORT INFORMATION
  Report Type: 
  Country: None (occurrence: None)
  Receive Date: 20120510
  Receipt Date: 20120509
  Transmission Date: 20120825
  Serious: Yes (Disabling)
  Sender: FDA-Public Use
  Company Number: JP-BAYER-2011-101297

PATIENT
  Age: 52 Year
  Sex: Male
  Weight: 42 kg

DRUGS (11)
  1. IA-CALL [Concomitant]
     Indication: THERAPEUTIC EMBOLISATION
     Dosage: DAILY DOSE 45 MG
     Route: 025
     Dates: start: 20110830
  2. MIRIPLATIN [Concomitant]
     Indication: THERAPEUTIC EMBOLISATION
     Dosage: DAILY DOSE 120 MG
     Route: 025
     Dates: start: 20111213
  3. NEXAVAR [Suspect]
     Indication: HEPATIC NEOPLASM MALIGNANT
     Dosage: 400 MG, BID
     Route: 048
     Dates: start: 20110922, end: 20111003
  4. NEXAVAR [Suspect]
     Dosage: DAILY DOSE 400 MG
     Route: 048
     Dates: start: 20111004, end: 20111207
  5. BARACLUDE [Concomitant]
     Indication: HEPATITIS B
     Dosage: 0.5 MG, QD
     Route: 048
     Dates: start: 20110808
  6. AMLODIPINE [Concomitant]
     Indication: HYPERTENSION
     Dosage: 5 MG, QD
     Route: 048
     Dates: start: 20120112, end: 20120226
  7. NEXAVAR [Suspect]
     Dosage: 400 MG, QD
     Route: 048
     Dates: start: 20111223, end: 20120112
  8. NEXAVAR [Suspect]
     Dosage: DAILY DOSE 600 MG
     Route: 048
     Dates: start: 20120113, end: 20120220
  9. NEXAVAR [Suspect]
     Dosage: 200 MG, QD
     Route: 048
     Dates: start: 20120221, end: 20120226
  10. OMEPRAZOLE [Concomitant]
     Indication: GASTRITIS HAEMORRHAGIC
     Dosage: 20 MG, QD
     Route: 048
     Dates: start: 20111201, end: 20120322
  11. NAPROXEN [Concomitant]
     Indication: TUMOUR ASSOCIATED FEVER
     Dosage: DAILY DOSE 300 MG
     Route: 048
     Dates: start: 20111209, end: 20120226

REACTIONS (6)
  - GASTROINTESTINAL NECROSIS [None]
  - MESENTERIC OCCLUSION [None]
  - DIARRHOEA [None]
  - ABDOMINAL PAIN [None]
  - PALMAR-PLANTAR ERYTHRODYSAESTHESIA SYNDROME [None]
  - NAUSEA [None]
